FAERS Safety Report 23504493 (Version 1)
Quarter: 2024Q1

REPORT INFORMATION
  Report Type: Spontaneous
  Country: US (occurrence: US)
  Receive Date: 20240209
  Receipt Date: 20240209
  Transmission Date: 20240410
  Serious: No
  Sender: FDA-Public Use
  Company Number: US-IGSA-BIG0027026

PATIENT
  Sex: Female
  Weight: 73 kg

DRUGS (11)
  1. PROLASTIN-C LIQUID [Suspect]
     Active Substance: .ALPHA.1-PROTEINASE INHIBITOR HUMAN
     Indication: Alpha-1 antitrypsin deficiency
     Dosage: 4380 MILLIGRAM, Q.WK.
     Route: 042
     Dates: start: 20200415
  2. VENTOLIN [Concomitant]
     Active Substance: ALBUTEROL SULFATE
  3. XANAX [Concomitant]
     Active Substance: ALPRAZOLAM
  4. TRELEGY ELLIPTA [Concomitant]
     Active Substance: FLUTICASONE FUROATE\UMECLIDINIUM BROMIDE\VILANTEROL TRIFENATATE
  5. PRILOSEC [Concomitant]
     Active Substance: OMEPRAZOLE MAGNESIUM
  6. CLARITIN [Concomitant]
     Active Substance: LORATADINE
  7. ALBUTEROL [Concomitant]
     Active Substance: ALBUTEROL
  8. WELLBUTRIN [Concomitant]
     Active Substance: BUPROPION HYDROCHLORIDE
  9. GABAPENTIN [Concomitant]
     Active Substance: GABAPENTIN
  10. TRAZODONE [Concomitant]
     Active Substance: TRAZODONE HYDROCHLORIDE
  11. DOXYCYCLINE [Concomitant]
     Active Substance: DOXYCYCLINE

REACTIONS (1)
  - Urinary tract infection [Recovering/Resolving]
